FAERS Safety Report 11764294 (Version 1)
Quarter: 2015Q4

REPORT INFORMATION
  Report Type: Spontaneous
  Country: US (occurrence: US)
  Receive Date: 20151120
  Receipt Date: 20151120
  Transmission Date: 20160304
  Serious: No
  Sender: FDA-Public Use
  Company Number: US-ELI_LILLY_AND_COMPANY-US201305005319

PATIENT
  Age: 58 Year
  Sex: Male

DRUGS (1)
  1. FORTEO [Suspect]
     Active Substance: TERIPARATIDE
     Indication: SPINAL FRACTURE
     Dosage: UNK, UNKNOWN
     Route: 065
     Dates: start: 20130412

REACTIONS (3)
  - Headache [Unknown]
  - Abdominal discomfort [Unknown]
  - Malaise [Unknown]

NARRATIVE: CASE EVENT DATE: 20130412
